FAERS Safety Report 4379421-1 (Version None)
Quarter: 2004Q2

REPORT INFORMATION
  Report Type: 
  Country: None (occurrence: None)
  Receive Date: 20040614
  Receipt Date: 20040531
  Transmission Date: 20050107
  Serious: Yes (Death, Life-Threatening)
  Sender: FDA-Public Use
  Company Number: CA-JNJFOC-20040600552

PATIENT
  Age: 45 Year
  Sex: Male
  Weight: 100.4 kg

DRUGS (8)
  1. REMICADE [Suspect]
     Indication: EOSINOPHILIC FASCIITIS
     Dosage: 450 MG INTRAVENOUS
     Route: 042
     Dates: start: 20040421
  2. PREDNISONE TAB [Concomitant]
  3. PRINIVIL [Concomitant]
  4. FUROSEMIDE [Concomitant]
  5. ALLOPURINOL [Concomitant]
  6. FOSAMAX [Concomitant]
  7. CARBOCAL (CALCIUM WITH VITAMIN D) [Concomitant]
  8. TEMAZEPAM [Concomitant]

REACTIONS (4)
  - BLASTOMYCOSIS [None]
  - PNEUMONIA [None]
  - PULMONARY FIBROSIS [None]
  - SCLERODERMA [None]
